FAERS Safety Report 5356494-0 (Version None)
Quarter: 2007Q2

REPORT INFORMATION
  Report Type: 
  Country: None (occurrence: None)
  Receive Date: 20070530
  Receipt Date: 20061213
  Transmission Date: 20071010
  Serious: Yes (Hospitalization)
  Sender: FDA-Public Use
  Company Number: US200609003801

PATIENT
  Age: 29 Year
  Sex: Male
  Weight: 108.8 kg

DRUGS (5)
  1. ZYPREXA [Suspect]
     Dosage: 10 MG
     Dates: start: 19990201, end: 20010101
  2. RISPERIDONE [Concomitant]
  3. SERZONE [Concomitant]
  4. ZOLOFT [Concomitant]
  5. PROLIXIN [Concomitant]

REACTIONS (3)
  - BLOOD CHOLESTEROL INCREASED [None]
  - DIABETES MELLITUS [None]
  - HYPERTENSION [None]
